FAERS Safety Report 10753470 (Version 1)
Quarter: 2015Q1

REPORT INFORMATION
  Report Type: Spontaneous
  Country: CH (occurrence: None)
  Receive Date: 20150129
  Receipt Date: 20150129
  Transmission Date: 20150721
  Serious: Yes (Hospitalization)
  Sender: FDA-Public Use
  Company Number: 20150031

PATIENT
  Age: 81 Year
  Sex: Male

DRUGS (8)
  1. AMIO (AMLODIPINE BESILATE) [Concomitant]
  2. PANAMAX (PARACETAMOL) [Concomitant]
  3. ALLOPURINOL. [Concomitant]
     Active Substance: ALLOPURINOL
  4. SOZOL (PANTOPRAZOLE SODIUM SESQUIHYDRATE) [Concomitant]
  5. CLOPIDOGREL [Concomitant]
     Active Substance: CLOPIDOGREL BISULFATE
  6. FERINJECT [Suspect]
     Active Substance: FERRIC CARBOXYMALTOSE
     Indication: PRODUCT USED FOR UNKNOWN INDICATION
     Dosage: 1 IN 1 TOTAL
     Route: 042
     Dates: start: 20140722, end: 20140722
  7. MICARDIA (TELMISARTAN) [Concomitant]
  8. ACETYLSALICYLIC ACID [Concomitant]
     Active Substance: ASPIRIN

REACTIONS (3)
  - Asthenia [None]
  - Local swelling [None]
  - Rhinorrhoea [None]

NARRATIVE: CASE EVENT DATE: 20140722
